FAERS Safety Report 23201515 (Version 4)
Quarter: 2024Q2

REPORT INFORMATION
  Report Type: Report from Study
  Country: US (occurrence: US)
  Receive Date: 20231118
  Receipt Date: 20240614
  Transmission Date: 20240716
  Serious: Yes (Other)
  Sender: FDA-Public Use
  Company Number: US-002147023-NVSC2023US244654

PATIENT
  Age: 45 Year
  Sex: Female

DRUGS (2)
  1. KESIMPTA [Suspect]
     Active Substance: OFATUMUMAB
     Indication: Relapsing multiple sclerosis
     Dosage: 20 MG, UNKNOWN
     Route: 065
     Dates: start: 20230519
  2. KESIMPTA [Suspect]
     Active Substance: OFATUMUMAB
     Dosage: 20 MG, QMO
     Route: 058
     Dates: start: 20230601

REACTIONS (7)
  - Pathological fracture [Unknown]
  - Hepatic enzyme increased [Not Recovered/Not Resolved]
  - Bronchitis [Not Recovered/Not Resolved]
  - Upper respiratory tract infection [Unknown]
  - Liver disorder [Unknown]
  - Foot fracture [Unknown]
  - Illness [Unknown]

NARRATIVE: CASE EVENT DATE: 20230801
